FAERS Safety Report 19844460 (Version 2)
Quarter: 2021Q3

REPORT INFORMATION
  Report Type: Spontaneous
  Country: US (occurrence: US)
  Receive Date: 20210916
  Receipt Date: 20210927
  Transmission Date: 20211014
  Serious: Yes (Hospitalization, Other)
  Sender: FDA-Public Use
  Company Number: US-TEVA-2021-US-1952544

PATIENT
  Age: 23 Year
  Sex: Female

DRUGS (8)
  1. SILTUXIMAB [Suspect]
     Active Substance: SILTUXIMAB
     Indication: PYREXIA
     Route: 042
  2. DEXAMETHASONE. [Suspect]
     Active Substance: DEXAMETHASONE
     Indication: PYREXIA
     Dosage: 10 MILLIGRAM DAILY;
     Route: 042
  3. ACETAMINOPHEN. [Suspect]
     Active Substance: ACETAMINOPHEN
     Indication: PYREXIA
     Route: 065
  4. KYMRIAH [Suspect]
     Active Substance: TISAGENLECLEUCEL
     Indication: ACUTE LYMPHOCYTIC LEUKAEMIA RECURRENT
     Route: 050
  5. DEXAMETHASONE. [Suspect]
     Active Substance: DEXAMETHASONE
     Indication: CYTOKINE RELEASE SYNDROME
     Dosage: 80 MILLIGRAM DAILY;
     Route: 042
  6. KYMRIAH [Suspect]
     Active Substance: TISAGENLECLEUCEL
     Indication: PHILADELPHIA CHROMOSOME NEGATIVE
  7. TOCILIZUMAB. [Suspect]
     Active Substance: TOCILIZUMAB
     Indication: CYTOKINE RELEASE SYNDROME
     Dosage: THREE DOSES
     Route: 042
  8. ANAKINRA [Concomitant]
     Active Substance: ANAKINRA
     Indication: CYTOKINE RELEASE SYNDROME
     Route: 058

REACTIONS (4)
  - Symptom masked [Unknown]
  - Drug ineffective [Unknown]
  - Cytokine release syndrome [Recovered/Resolved]
  - Haemophagocytic lymphohistiocytosis [Recovered/Resolved]
